FAERS Safety Report 23635741 (Version 2)
Quarter: 2024Q1

REPORT INFORMATION
  Report Type: Spontaneous
  Country: US (occurrence: US)
  Receive Date: 20240315
  Receipt Date: 20240328
  Transmission Date: 20240409
  Serious: No
  Sender: FDA-Public Use
  Company Number: US-ELI_LILLY_AND_COMPANY-US202403008228

PATIENT
  Age: 23 Year
  Sex: Female

DRUGS (3)
  1. OLUMIANT [Suspect]
     Active Substance: BARICITINIB
     Indication: Alopecia areata
     Dosage: 2 MG, DAILY
     Route: 048
     Dates: start: 202210
  2. OLUMIANT [Suspect]
     Active Substance: BARICITINIB
     Indication: Dermatitis atopic
     Dosage: 4 MG, DAILY
     Route: 048
     Dates: start: 202401
  3. OLUMIANT [Suspect]
     Active Substance: BARICITINIB
     Indication: Alopecia universalis

REACTIONS (4)
  - Dermatitis atopic [Unknown]
  - Eosinophil count increased [Unknown]
  - Lipids increased [Unknown]
  - Platelet count increased [Unknown]
